FAERS Safety Report 20383396 (Version 8)
Quarter: 2022Q2

REPORT INFORMATION
  Report Type: Spontaneous
  Country: PE (occurrence: PE)
  Receive Date: 20220127
  Receipt Date: 20220512
  Transmission Date: 20220721
  Serious: Yes (Death, Hospitalization, Other)
  Sender: FDA-Public Use
  Company Number: PE-PFIZER INC-202200027229

PATIENT
  Age: 72 Year
  Sex: Male

DRUGS (4)
  1. SUTENT [Suspect]
     Active Substance: SUNITINIB MALATE
     Indication: Renal cancer metastatic
     Dosage: 50 MG (2 CAPSULES OF 25 MG), DAILY
     Route: 048
     Dates: start: 20220107, end: 20220203
  2. SUTENT [Suspect]
     Active Substance: SUNITINIB MALATE
     Dosage: 50 MG (2 CAPSULES OF 25 MG), DAILY
     Route: 048
     Dates: start: 20220228
  3. ILTUX [Concomitant]
     Indication: Hypertension
     Dosage: 20 MG (1 UNIT 06:00 AM), DAILY
     Dates: start: 2002
  4. ESOMEPRAZOLE [Concomitant]
     Active Substance: ESOMEPRAZOLE
     Indication: Chronic gastritis
     Dosage: 40 MG (1 UNIT 07:00 AM), DAILY
     Dates: start: 20211126

REACTIONS (25)
  - Death [Fatal]
  - Hiccups [Recovered/Resolved]
  - Liver injury [Unknown]
  - Hepatotoxicity [Not Recovered/Not Resolved]
  - Platelet count decreased [Not Recovered/Not Resolved]
  - Poisoning [Unknown]
  - Dyspepsia [Recovered/Resolved]
  - Eructation [Recovering/Resolving]
  - Abdominal distension [Recovered/Resolved]
  - Nausea [Recovered/Resolved]
  - Constipation [Recovered/Resolved]
  - Salivary hypersecretion [Recovered/Resolved]
  - White blood cell count decreased [Recovering/Resolving]
  - Haemoglobin decreased [Recovering/Resolving]
  - Blood alkaline phosphatase increased [Recovering/Resolving]
  - Blood bilirubin increased [Recovering/Resolving]
  - Gamma-glutamyltransferase increased [Recovering/Resolving]
  - Yellow skin [Recovering/Resolving]
  - Weight decreased [Unknown]
  - Nocturia [Unknown]
  - Flatulence [Recovering/Resolving]
  - Haematotoxicity [Not Recovered/Not Resolved]
  - Asthenia [Unknown]
  - Mouth haemorrhage [Unknown]
  - Dysphagia [Unknown]

NARRATIVE: CASE EVENT DATE: 20220101
